FAERS Safety Report 4798848-7 (Version None)
Quarter: 2005Q4

REPORT INFORMATION
  Report Type: 
  Country: None (occurrence: None)
  Receive Date: 20051014
  Receipt Date: 20050930
  Transmission Date: 20060501
  Serious: Yes (Disabling, Other)
  Sender: FDA-Public Use
  Company Number: US-GLAXOSMITHKLINE-A0576594A

PATIENT
  Age: 56 Year
  Sex: Female
  Weight: 95.5 kg

DRUGS (6)
  1. AVANDAMET [Suspect]
     Indication: DIABETES MELLITUS NON-INSULIN-DEPENDENT
     Dosage: 1TAB TWICE PER DAY
     Route: 048
  2. ADVAIR DISKUS 100/50 [Suspect]
     Indication: ASTHMA
     Dosage: 1PUFF FOUR TIMES PER DAY
     Route: 055
  3. ACTOS [Suspect]
     Indication: DIABETES MELLITUS NON-INSULIN-DEPENDENT
  4. CELEBREX [Concomitant]
     Dosage: 200MG PER DAY
     Route: 048
  5. GLUCOTROL [Concomitant]
     Route: 048
  6. INSULIN [Concomitant]

REACTIONS (5)
  - CARDIOMEGALY [None]
  - DIABETES MELLITUS INADEQUATE CONTROL [None]
  - PRESCRIBED OVERDOSE [None]
  - STATUS ASTHMATICUS [None]
  - WHEEZING [None]
